FAERS Safety Report 7263853-8 (Version None)
Quarter: 2011Q1

REPORT INFORMATION
  Report Type: 
  Country: None (occurrence: None)
  Receive Date: 20110130
  Receipt Date: 20101206
  Transmission Date: 20110831
  Serious: No
  Sender: FDA-Public Use
  Company Number: US-ABBOTT-10P-163-0690005-00

PATIENT
  Weight: 72.64 kg

DRUGS (2)
  1. CELEBREX [Concomitant]
     Indication: ARTHRITIS
  2. HUMIRA [Suspect]
     Indication: PSORIASIS
     Dates: start: 20101001

REACTIONS (4)
  - DRUG INEFFECTIVE [None]
  - RASH PRURITIC [None]
  - ERYTHEMA [None]
  - RASH GENERALISED [None]
